FAERS Safety Report 8226876-8 (Version None)
Quarter: 2012Q1

REPORT INFORMATION
  Report Type: 
  Country: None (occurrence: None)
  Receive Date: 20120322
  Receipt Date: 20120310
  Transmission Date: 20120608
  Serious: Yes (Hospitalization)
  Sender: FDA-Public Use
  Company Number: US-BAYER-2011-042762

PATIENT
  Age: 18 Year
  Sex: Female
  Weight: 56.689 kg

DRUGS (12)
  1. ORTHO TRI-CYCLEN LO [Concomitant]
     Indication: CONTRACEPTION
     Dosage: UNK
     Dates: start: 20020901, end: 20031201
  2. PERCOCET [Concomitant]
     Dosage: UNK
     Dates: start: 20040104
  3. DIURETICS [Concomitant]
  4. HYDROCHLOROTHIAZIDE [Concomitant]
     Dosage: UNK
     Dates: start: 20030801, end: 20051201
  5. SYNTHROID [Concomitant]
  6. YASMIN [Suspect]
     Indication: CONTRACEPTION
     Dosage: UNK
     Dates: start: 20031221, end: 20031227
  7. LISINOPRIL [Concomitant]
  8. ASPIRIN [Concomitant]
  9. COREG [Concomitant]
  10. IBUPROFEN (ADVIL) [Concomitant]
  11. CELEBREX [Concomitant]
     Dosage: UNK
     Dates: start: 20040502
  12. CARVEDILOL [Concomitant]

REACTIONS (11)
  - PAIN IN EXTREMITY [None]
  - TACHYCARDIA [None]
  - ABNORMAL WEIGHT GAIN [None]
  - PSYCHOLOGICAL TRAUMA [None]
  - ANXIETY [None]
  - OEDEMA PERIPHERAL [None]
  - PELVIC VENOUS THROMBOSIS [None]
  - DYSPNOEA [None]
  - ANHEDONIA [None]
  - DEEP VEIN THROMBOSIS [None]
  - PULMONARY EMBOLISM [None]
